FAERS Safety Report 6842873-9 (Version None)
Quarter: 2010Q3

REPORT INFORMATION
  Report Type: 
  Country: None (occurrence: None)
  Receive Date: 20100714
  Receipt Date: 20070808
  Transmission Date: 20110219
  Serious: No
  Sender: FDA-Public Use
  Company Number: US-PFIZER INC-2007066848

PATIENT
  Sex: Female
  Weight: 58.2 kg

DRUGS (2)
  1. CHANTIX [Suspect]
     Indication: SMOKING CESSATION THERAPY
     Dates: start: 20070807
  2. EFFEXOR XR [Concomitant]
     Dates: start: 19920101

REACTIONS (4)
  - ANXIETY [None]
  - NIGHTMARE [None]
  - SLEEP DISORDER [None]
  - TENSION [None]
